FAERS Safety Report 7080302-3 (Version None)
Quarter: 2010Q4

REPORT INFORMATION
  Report Type: 
  Country: None (occurrence: None)
  Receive Date: 20101103
  Receipt Date: 20101020
  Transmission Date: 20110411
  Serious: Yes (Other)
  Sender: FDA-Public Use
  Company Number: DE-RANBAXY-2010RR-39114

PATIENT
  Age: 49 Year
  Sex: Female
  Weight: 90 kg

DRUGS (1)
  1. SIMVASTATIN [Suspect]
     Indication: HYPERLIPIDAEMIA
     Dosage: 80 MG, UNK
     Route: 048
     Dates: start: 20050101, end: 20100501

REACTIONS (1)
  - POLYNEUROPATHY [None]
